FAERS Safety Report 13647439 (Version 1)
Quarter: 2017Q2

REPORT INFORMATION
  Report Type: Spontaneous
  Country: US (occurrence: US)
  Receive Date: 20170613
  Receipt Date: 20170613
  Transmission Date: 20170830
  Serious: Yes (Hospitalization)
  Sender: FDA-Public Use
  Company Number: US-SAGENTPRD-2017-US-000032

PATIENT
  Age: 52 Year
  Sex: Male
  Weight: 113.4 kg

DRUGS (16)
  1. KETOROLAC [Concomitant]
     Active Substance: KETOROLAC\KETOROLAC TROMETHAMINE
  2. OFIRMEV [Concomitant]
     Active Substance: ACETAMINOPHEN
  3. DEXAMETHASONE. [Concomitant]
     Active Substance: DEXAMETHASONE
  4. CEFAZOLIN [Concomitant]
     Active Substance: CEFAZOLIN
  5. METOCLOPRAMIDE. [Concomitant]
     Active Substance: METOCLOPRAMIDE
  6. SEVOFLURANE. [Concomitant]
     Active Substance: SEVOFLURANE
  7. MIDAZOLAM [Concomitant]
     Active Substance: MIDAZOLAM HYDROCHLORIDE
  8. PROPOFOL INJECTABLE EMULSION, USP [Suspect]
     Active Substance: PROPOFOL
     Route: 042
     Dates: start: 20170526, end: 20170526
  9. FENTANYL. [Concomitant]
     Active Substance: FENTANYL
  10. FAMOTIDINE. [Concomitant]
     Active Substance: FAMOTIDINE
  11. SUCCINYLCHOLINE [Concomitant]
     Active Substance: SUCCINYLCHOLINE
  12. EPHEDRINE. [Concomitant]
     Active Substance: EPHEDRINE
  13. HYDROMORPHONE [Concomitant]
     Active Substance: HYDROMORPHONE
  14. LIDOCAINE. [Concomitant]
     Active Substance: LIDOCAINE
  15. GLYCOPYRROLATE. [Concomitant]
     Active Substance: GLYCOPYRROLATE
  16. ROPIVACAINE [Concomitant]
     Active Substance: ROPIVACAINE

REACTIONS (1)
  - Pancreatitis [Recovering/Resolving]

NARRATIVE: CASE EVENT DATE: 20170526
